FAERS Safety Report 22034978 (Version 3)
Quarter: 2023Q2

REPORT INFORMATION
  Report Type: Spontaneous
  Country: None (occurrence: US)
  Receive Date: 20230224
  Receipt Date: 20230517
  Transmission Date: 20230721
  Serious: Yes (Other)
  Sender: FDA-Public Use
  Company Number: US-Imprimis NJOF, LLC-2138313

PATIENT
  Sex: Female

DRUGS (1)
  1. TOBRAMYCIN\VANCOMYCIN [Suspect]
     Active Substance: TOBRAMYCIN\VANCOMYCIN
     Route: 047

REACTIONS (1)
  - Corneal epithelium defect [Not Recovered/Not Resolved]
